FAERS Safety Report 4449935-4 (Version None)
Quarter: 2004Q3

REPORT INFORMATION
  Report Type: 
  Country: None (occurrence: None)
  Receive Date: 20040915
  Receipt Date: 20040831
  Transmission Date: 20050211
  Serious: Yes (Life-Threatening, Hospitalization, Disabling)
  Sender: FDA-Public Use
  Company Number: FR-GLAXOSMITHKLINE-B0343937A

PATIENT
  Age: 47 Year
  Sex: Female

DRUGS (5)
  1. ZYBAN [Suspect]
     Indication: SMOKING CESSATION THERAPY
     Dosage: 150MG UNKNOWN
     Route: 048
     Dates: end: 20040423
  2. LEVOTHYROXINE SODIUM [Concomitant]
     Indication: THYROID DISORDER
  3. TENORMIN [Concomitant]
     Indication: HYPERTENSION
     Route: 048
     Dates: end: 20040423
  4. MOPRAL [Concomitant]
  5. FEMALE HORMONES [Concomitant]
     Indication: DYSMENORRHOEA

REACTIONS (13)
  - APHASIA [None]
  - BRADYPHRENIA [None]
  - CEREBRAL INFARCTION [None]
  - CEREBROVASCULAR ACCIDENT [None]
  - COMA [None]
  - CONFUSIONAL STATE [None]
  - DISTURBANCE IN ATTENTION [None]
  - HEADACHE [None]
  - HEMIPARESIS [None]
  - HEMIPLEGIA [None]
  - HYPERTENSION [None]
  - HYPERTENSIVE CRISIS [None]
  - HYPERTRIGLYCERIDAEMIA [None]
